FAERS Safety Report 8744323 (Version 2)
Quarter: 2012Q4

REPORT INFORMATION
  Report Type: 
  Country: JP (occurrence: JP)
  Receive Date: 20120825
  Receipt Date: 20121109
  Transmission Date: 20130627
  Serious: Yes (Other)
  Sender: FDA-Public Use
  Company Number: JP-MERCK-1208JPN005495

PATIENT
  Age: 56 Year
  Sex: Female
  Weight: 56 kg

DRUGS (12)
  1. PEGINTRON [Suspect]
     Indication: HEPATITIS C
     Dosage: 1.43 Microgram per kilogram, qw
     Route: 058
     Dates: start: 20120713, end: 20120717
  2. REBETOL [Suspect]
     Indication: HEPATITIS C
     Dosage: 400 mg, qd
     Route: 048
     Dates: start: 20120713, end: 20120717
  3. TELAVIC [Suspect]
     Indication: HEPATITIS C
     Dosage: 2250 mg, qd
     Route: 048
     Dates: start: 20120713, end: 20120715
  4. TELAVIC [Suspect]
     Dosage: 750 mg, qd
     Route: 048
     Dates: start: 20120716, end: 20120717
  5. URSODEOXYCHOLIC ACID [Concomitant]
     Indication: HEPATITIS C
     Dosage: n900 mg, qd
  6. GLIMEPRID [Concomitant]
     Indication: DIABETES MELLITUS
     Dosage: 3 mg, qd
     Route: 048
  7. GLIMEPRID [Concomitant]
     Dosage: 1 mg, qd
     Route: 048
  8. SEIBULE [Concomitant]
     Indication: DIABETES MELLITUS
     Dosage: 150 mg, qd
     Route: 048
  9. SEIBULE [Concomitant]
     Dosage: 50 mg, qd
     Route: 048
  10. BLOPRESS [Concomitant]
     Indication: HYPERTENSION
     Dosage: 8 mg, qd
     Route: 048
  11. ZETIA [Concomitant]
     Indication: HYPERLIPIDAEMIA
     Dosage: 10 mg, qd
     Route: 048
  12. JANUVIA TABLETS 50MG [Concomitant]
     Indication: DIABETES MELLITUS
     Dosage: 50 mg, qd
     Route: 048

REACTIONS (1)
  - Blood creatinine increased [Recovered/Resolved]
